FAERS Safety Report 12137608 (Version 1)
Quarter: 2016Q1

REPORT INFORMATION
  Report Type: Spontaneous
  Country: US (occurrence: US)
  Receive Date: 20160302
  Receipt Date: 20160302
  Transmission Date: 20160526
  Serious: No
  Sender: FDA-Public Use
  Company Number: US-BAYER-2016-037797

PATIENT
  Age: 25 Year
  Sex: Female

DRUGS (1)
  1. GADAVIST [Suspect]
     Active Substance: GADOBUTROL
     Indication: NUCLEAR MAGNETIC RESONANCE IMAGING
     Dosage: 0.1 MMOL, ONCE
     Dates: start: 20160222, end: 20160222

REACTIONS (3)
  - Erythema [None]
  - Off label use [None]
  - Pain in extremity [None]

NARRATIVE: CASE EVENT DATE: 20160223
